FAERS Safety Report 6758603-5 (Version None)
Quarter: 2010Q2

REPORT INFORMATION
  Report Type: 
  Country: None (occurrence: None)
  Receive Date: 20100607
  Receipt Date: 20100503
  Transmission Date: 20101027
  Serious: No
  Sender: FDA-Public Use
  Company Number: US-JNJFOC-20100503557

PATIENT
  Age: 1 Year
  Sex: Male

DRUGS (5)
  1. CONCENTRATED TYLENOL INFANT DROPS [Suspect]
     Route: 048
  2. CONCENTRATED TYLENOL INFANT DROPS [Suspect]
     Indication: DRUG USE FOR UNKNOWN INDICATION
     Route: 048
  3. CONCENTRATED MOTRIN INFANTS DROPS [Suspect]
  4. CONCENTRATED MOTRIN INFANTS DROPS [Suspect]
     Indication: DRUG USE FOR UNKNOWN INDICATION
  5. ZYRTEC [Suspect]
     Indication: DRUG USE FOR UNKNOWN INDICATION

REACTIONS (2)
  - MALAISE [None]
  - PRODUCT QUALITY ISSUE [None]
